FAERS Safety Report 8188423-9 (Version None)
Quarter: 2012Q1

REPORT INFORMATION
  Report Type: 
  Country: None (occurrence: None)
  Receive Date: 20120306
  Receipt Date: 20120227
  Transmission Date: 20120608
  Serious: Yes (Other)
  Sender: FDA-Public Use
  Company Number: PHHY2012VE018062

PATIENT
  Sex: Female

DRUGS (10)
  1. WARFARIN SODIUM [Concomitant]
     Indication: DEEP VEIN THROMBOSIS
     Dosage: 5 MG, UNK
  2. WARFARIN SODIUM [Concomitant]
     Dosage: 2.5 MG, UNK
  3. ALPRAZOLAM [Concomitant]
     Dosage: 0.5 MG, DAILY
     Route: 048
  4. EPOGEN [Concomitant]
     Indication: BONE MARROW FAILURE
     Dosage: 30.000 IU, ONCE A WEEK
     Route: 058
     Dates: start: 20110801, end: 20120213
  5. WARFARIN SODIUM [Concomitant]
     Dosage: UNK UKN, UNK
     Dates: start: 20061101, end: 20120220
  6. ESOX [Concomitant]
     Indication: GASTRITIS
     Dosage: 40 MG, UNK
     Route: 048
     Dates: start: 20060101
  7. EXJADE [Suspect]
     Indication: IRON OVERLOAD
     Dosage: UNK UKN, UNK
     Dates: start: 20110801, end: 20111101
  8. EXJADE [Suspect]
     Dosage: 500 MG, DAILY
     Dates: start: 20120101, end: 20120220
  9. CEDAX [Concomitant]
     Dosage: 400 MG, EVERY OTHER DAY
     Dates: start: 20111201
  10. WARFARIN SODIUM [Concomitant]
     Dosage: UNK UKN, UNK
     Dates: start: 20120301

REACTIONS (3)
  - SERUM FERRITIN INCREASED [None]
  - HAEMOGLOBIN DECREASED [None]
  - ABDOMINAL DISCOMFORT [None]
